FAERS Safety Report 10163693 (Version 2)
Quarter: 2014Q2

REPORT INFORMATION
  Report Type: Report from Study
  Country: DE (occurrence: NL)
  Receive Date: 20140509
  Receipt Date: 20140529
  Transmission Date: 20141212
  Serious: Yes (Hospitalization)
  Sender: FDA-Public Use
  Company Number: DE-ACTELION-A-US2010-98291

PATIENT
  Age: 56 Year
  Sex: Female

DRUGS (13)
  1. VENTAVIS [Suspect]
     Indication: PRODUCT USED FOR UNKNOWN INDICATION
     Dosage: 6 AMPULES DAILY
     Route: 055
     Dates: start: 20091104
  2. OXYGEN [Concomitant]
  3. PREDNISONE [Concomitant]
  4. FUROSEMIDE [Concomitant]
  5. REVATIO [Concomitant]
  6. ACETAZOLAMIDE [Concomitant]
  7. PREDNISOLONE [Concomitant]
  8. METHOTREXATE [Concomitant]
  9. FOLIC ACID [Concomitant]
  10. ALENDRONIC ACID [Concomitant]
  11. CALCICHEW [Concomitant]
  12. SPIRONOLACTONE [Concomitant]
  13. ESOMEPRAZOLE [Concomitant]

REACTIONS (10)
  - Pneumonia [Unknown]
  - Lung transplant [Unknown]
  - Infection [Unknown]
  - Lung infection [Unknown]
  - Malaise [Unknown]
  - Influenza like illness [Unknown]
  - Chest pain [Unknown]
  - Nasopharyngitis [Unknown]
  - Sputum purulent [Unknown]
  - Intentional product misuse [Unknown]
